FAERS Safety Report 9523277 (Version 1)
Quarter: 2013Q1

REPORT INFORMATION
  Report Type: Spontaneous
  Country: US (occurrence: None)
  Receive Date: 20130305
  Receipt Date: 20130305
  Transmission Date: 20140127
  Serious: Yes (Other)
  Sender: FDA-Public Use
  Company Number: 163-21880-12072389

PATIENT
  Age: 80 Year
  Sex: Female

DRUGS (4)
  1. REVLIMID [Suspect]
     Indication: PLASMA CELL MYELOMA
     Dosage: 25 MG, 21 IN 21 D, PO
     Route: 048
     Dates: start: 20120706
  2. AMLODIPINE BESYLATE (AMLODIPINE BESILATE) [Concomitant]
  3. AMOXICILLIN (AMOXICILLIN) [Concomitant]
  4. WARFARIN SODIUM (WARFARIN SODIUM) [Concomitant]

REACTIONS (1)
  - Rash [None]
